FAERS Safety Report 10897430 (Version 1)
Quarter: 2015Q1

REPORT INFORMATION
  Report Type: Spontaneous
  Country: US (occurrence: US)
  Receive Date: 20150309
  Receipt Date: 20150309
  Transmission Date: 20150721
  Serious: No
  Sender: FDA-Public Use
  Company Number: US-009507513-1502USA010871

PATIENT
  Sex: Female

DRUGS (2)
  1. IMPLANON [Suspect]
     Active Substance: ETONOGESTREL
     Dosage: UNK
     Route: 059
     Dates: start: 2009, end: 2012
  2. IMPLANON [Suspect]
     Active Substance: ETONOGESTREL
     Dosage: STRENGTH 68 (UNITS NOT PROVIDED)
     Route: 059
     Dates: start: 2012

REACTIONS (1)
  - Headache [Not Recovered/Not Resolved]
